FAERS Safety Report 24923084 (Version 1)
Quarter: 2025Q1

REPORT INFORMATION
  Report Type: Spontaneous
  Country: FR (occurrence: FR)
  Receive Date: 20250204
  Receipt Date: 20250204
  Transmission Date: 20250409
  Serious: Yes (Death, Life-Threatening)
  Sender: SANDOZ
  Company Number: None

PATIENT
  Age: 47 Year
  Sex: Male
  Weight: 90 kg

DRUGS (3)
  1. CELLCEPT [Suspect]
     Active Substance: MYCOPHENOLATE MOFETIL
     Indication: Immunosuppressant drug therapy
     Dosage: 4 DF, QD
     Route: 048
     Dates: start: 20240523, end: 20250106
  2. PREDNISOLONE [Suspect]
     Active Substance: PREDNISOLONE
     Indication: Immunosuppressant drug therapy
     Dosage: 10 MG, QD
     Route: 048
     Dates: start: 20240523, end: 20250106
  3. RITUXIMAB [Suspect]
     Active Substance: RITUXIMAB
     Indication: Immunosuppressant drug therapy
     Route: 042
     Dates: start: 20240911, end: 20241023

REACTIONS (2)
  - Septic shock [Fatal]
  - Leukopenia [Not Recovered/Not Resolved]

NARRATIVE: CASE EVENT DATE: 20250106
